FAERS Safety Report 8654791 (Version 5)
Quarter: 2012Q4

REPORT INFORMATION
  Report Type: 
  Country: US (occurrence: US)
  Receive Date: 20120709
  Receipt Date: 20121011
  Transmission Date: 20130627
  Serious: Yes (Hospitalization)
  Sender: FDA-Public Use
  Company Number: PHEH2012US013249

PATIENT
  Age: 45 Year
  Sex: Female
  Weight: 97.51 kg

DRUGS (6)
  1. GILENYA [Suspect]
     Indication: MULTIPLE SCLEROSIS
     Dosage: 0.5 mg, daily
     Route: 048
     Dates: start: 20110715, end: 20111128
  2. VITAMIN D3 [Concomitant]
     Dosage: UNK UKN, Once daily
  3. IMITREX [Concomitant]
     Dosage: UNK UKN, PRN
  4. CELEXA [Concomitant]
     Dosage: 20 mg, QD
  5. CELEXA [Concomitant]
     Dosage: 10 mg, QD
  6. SYNTHROID [Concomitant]
     Dosage: 25 ug, QD

REACTIONS (33)
  - Blindness [Recovering/Resolving]
  - Aggression [Recovering/Resolving]
  - Anger [Recovering/Resolving]
  - Agitation [Recovering/Resolving]
  - Unresponsive to stimuli [Recovering/Resolving]
  - Speech disorder [Recovering/Resolving]
  - Slow speech [Recovering/Resolving]
  - Emotional distress [Recovering/Resolving]
  - Mental status changes [Recovering/Resolving]
  - Feeling abnormal [Recovering/Resolving]
  - Disorientation [Recovering/Resolving]
  - Confusional state [Recovered/Resolved]
  - Disturbance in attention [Recovering/Resolving]
  - Blood potassium decreased [Recovering/Resolving]
  - Paralysis [Recovering/Resolving]
  - Blood creatine phosphokinase increased [Recovering/Resolving]
  - Pyrexia [Recovering/Resolving]
  - Acute respiratory failure [Recovered/Resolved]
  - Oedema peripheral [Recovering/Resolving]
  - Blood pressure fluctuation [Recovering/Resolving]
  - White blood cell count decreased [Recovering/Resolving]
  - Headache [Recovered/Resolved]
  - Depression [Recovering/Resolving]
  - Vision blurred [Recovering/Resolving]
  - Crying [Recovering/Resolving]
  - Bronchitis [Recovering/Resolving]
  - Lymphopenia [Recovering/Resolving]
  - Diarrhoea [Recovering/Resolving]
  - Blood urea decreased [Unknown]
  - Pain in extremity [Unknown]
  - Electroencephalogram abnormal [Unknown]
  - Alanine aminotransferase decreased [Unknown]
  - Nasopharyngitis [Recovering/Resolving]
